FAERS Safety Report 24891478 (Version 2)
Quarter: 2025Q4

REPORT INFORMATION
  Report Type: Spontaneous
  Country: US (occurrence: US)
  Receive Date: 20250127
  Receipt Date: 20251001
  Transmission Date: 20260117
  Serious: No
  Sender: PFIZER
  Company Number: US-PFIZER INC-PV202500009892

PATIENT
  Age: 87 Year
  Sex: Female
  Weight: 68.8 kg

DRUGS (2)
  1. IBRANCE [Suspect]
     Active Substance: PALBOCICLIB
     Dosage: 125 MG, CYCLIC (DAILY X 21 DAYS, STOP FOR 7 DAYS, THEN REPEAT)
     Route: 048
     Dates: start: 20200623
  2. FULVESTRANT [Suspect]
     Active Substance: FULVESTRANT
     Dosage: UNK
     Dates: start: 20200611

REACTIONS (1)
  - Diarrhoea [Not Recovered/Not Resolved]
